FAERS Safety Report 7007040-7 (Version None)
Quarter: 2010Q3

REPORT INFORMATION
  Report Type: 
  Country: None (occurrence: None)
  Receive Date: 20100922
  Receipt Date: 20100913
  Transmission Date: 20110219
  Serious: Yes (Other)
  Sender: FDA-Public Use
  Company Number: FR-B.I. PHARMACEUTICALS,INC./RIDGEFIELD-2010-FF-00725FF

PATIENT
  Sex: Male

DRUGS (11)
  1. MECIR LP 0.4 [Suspect]
     Route: 048
     Dates: end: 20091229
  2. SOTALEX [Suspect]
     Route: 048
  3. FLUDEX [Suspect]
     Route: 048
     Dates: end: 20091229
  4. TOPALGIC [Suspect]
     Route: 048
     Dates: end: 20091229
  5. VALPROATE SODIUM [Suspect]
     Route: 048
  6. KARDEGIC [Suspect]
     Dosage: 300 MG
     Route: 048
     Dates: end: 20091229
  7. NEURONTIN [Suspect]
     Route: 048
  8. SERETIDE [Suspect]
     Route: 055
  9. INIPOMP [Suspect]
  10. ZYLORIC [Suspect]
  11. COLCHICINE [Suspect]
     Dates: start: 20080601, end: 20091225

REACTIONS (17)
  - BODY TEMPERATURE DECREASED [None]
  - BUNDLE BRANCH BLOCK RIGHT [None]
  - CONFUSIONAL STATE [None]
  - DIARRHOEA [None]
  - FAECAL INCONTINENCE [None]
  - HYPERGLYCAEMIA [None]
  - LABORATORY TEST INTERFERENCE [None]
  - LOSS OF CONSCIOUSNESS [None]
  - MALAISE [None]
  - MIOSIS [None]
  - ORTHOSTATIC HYPOTENSION [None]
  - OXYGEN SATURATION DECREASED [None]
  - RENAL FAILURE [None]
  - RESPIRATORY RATE INCREASED [None]
  - SUPRAVENTRICULAR EXTRASYSTOLES [None]
  - URINARY INCONTINENCE [None]
  - VENTRICULAR EXTRASYSTOLES [None]
